FAERS Safety Report 20231511 (Version 2)
Quarter: 2022Q1

REPORT INFORMATION
  Report Type: Spontaneous
  Country: CZ (occurrence: CZ)
  Receive Date: 20211227
  Receipt Date: 20220120
  Transmission Date: 20220423
  Serious: Yes (Death, Life-Threatening, Hospitalization, Other)
  Sender: FDA-Public Use
  Company Number: CZ-BRISTOL-MYERS SQUIBB COMPANY-BMS-2021-140496

PATIENT
  Age: 76 Year
  Sex: Female
  Weight: 68 kg

DRUGS (5)
  1. NIVOLUMAB [Suspect]
     Active Substance: NIVOLUMAB
     Indication: Non-small cell lung cancer
     Dosage: 360 MILLIGRAM, Q3WK
     Route: 042
     Dates: start: 20211203, end: 20211203
  2. IPILIMUMAB [Suspect]
     Active Substance: IPILIMUMAB
     Indication: Non-small cell lung cancer
     Dosage: 68 MILLIGRAM, Q6WK
     Route: 042
     Dates: start: 20211203
  3. CARBOPLATIN [Suspect]
     Active Substance: CARBOPLATIN
     Indication: Non-small cell lung cancer
     Dosage: 400 MILLIGRAM, Q3WK
     Route: 042
     Dates: start: 20211203, end: 20211203
  4. PEMETREXED [Suspect]
     Active Substance: PEMETREXED
     Indication: Non-small cell lung cancer
     Dosage: 800 MILLIGRAM, Q3WK
     Route: 042
  5. METOCLOPRAMIDE HYDROCHLORIDE [Concomitant]
     Active Substance: METOCLOPRAMIDE HYDROCHLORIDE
     Indication: Prophylaxis
     Dosage: 10 MILLIGRAM, BID
     Route: 048

REACTIONS (16)
  - Pulmonary haemorrhage [Fatal]
  - Pancytopenia [Unknown]
  - Hypophysitis [Unknown]
  - Diarrhoea [Unknown]
  - Sepsis [Recovering/Resolving]
  - Urinary tract infection bacterial [Unknown]
  - Pneumonia [Unknown]
  - Hypokalaemia [Unknown]
  - Klebsiella infection [Unknown]
  - Dehydration [Unknown]
  - Hypophosphataemia [Unknown]
  - Hypocalcaemia [Unknown]
  - Hypomagnesaemia [Unknown]
  - Weight decreased [Unknown]
  - Vocal cord paresis [Unknown]
  - Malnutrition [Unknown]

NARRATIVE: CASE EVENT DATE: 20211210
